FAERS Safety Report 22151450 (Version 2)
Quarter: 2023Q2

REPORT INFORMATION
  Report Type: Spontaneous
  Country: PT (occurrence: PT)
  Receive Date: 20230329
  Receipt Date: 20230410
  Transmission Date: 20230721
  Serious: Yes (Other)
  Sender: FDA-Public Use
  Company Number: PT-ORGANON-O2303PRT002527

PATIENT
  Age: 18 Year
  Sex: Female

DRUGS (1)
  1. ETONOGESTREL [Suspect]
     Active Substance: ETONOGESTREL
     Dosage: 1 IMPLANT
     Route: 059
     Dates: start: 20221228, end: 20230405

REACTIONS (2)
  - Pregnancy with implant contraceptive [Not Recovered/Not Resolved]
  - Unintended pregnancy [Not Recovered/Not Resolved]

NARRATIVE: CASE EVENT DATE: 20221228
